FAERS Safety Report 7046960-4 (Version None)
Quarter: 2010Q4

REPORT INFORMATION
  Report Type: 
  Country: None (occurrence: None)
  Receive Date: 20101012
  Receipt Date: 20100927
  Transmission Date: 20110411
  Serious: Yes (Hospitalization, Other)
  Sender: FDA-Public Use
  Company Number: 2010AP002087

PATIENT
  Age: 39 Year
  Sex: Female

DRUGS (7)
  1. RISPERIDONE [Suspect]
     Indication: PRODUCT USED FOR UNKNOWN INDICATION
     Dosage: 2 MG;QD;PO, 4 MG;QD;PO, 2 MG:QD;PO
     Route: 048
     Dates: start: 20100714, end: 20100718
  2. RISPERIDONE [Suspect]
     Indication: PRODUCT USED FOR UNKNOWN INDICATION
     Dosage: 2 MG;QD;PO, 4 MG;QD;PO, 2 MG:QD;PO
     Route: 048
     Dates: start: 20100719, end: 20100728
  3. RISPERIDONE [Suspect]
     Indication: PRODUCT USED FOR UNKNOWN INDICATION
     Dosage: 2 MG;QD;PO, 4 MG;QD;PO, 2 MG:QD;PO
     Route: 048
     Dates: start: 20100729, end: 20100803
  4. RISPERDAL CONSTA [Suspect]
     Indication: SCHIZOPHRENIA, PARANOID TYPE
     Dosage: 25 MG;INJECTION;IM;QOW
     Route: 030
     Dates: start: 20100720, end: 20100803
  5. CITALOPRAM HYDROBROMIDE [Concomitant]
  6. QUETIAPINE FUMARATE [Concomitant]
  7. MINCOCYCLINE (MINOCYCLINE) [Concomitant]

REACTIONS (5)
  - HEAD TITUBATION [None]
  - MALAISE [None]
  - MUSCULOSKELETAL STIFFNESS [None]
  - NAUSEA [None]
  - TREMOR [None]
